FAERS Safety Report 5600218-6 (Version None)
Quarter: 2008Q1

REPORT INFORMATION
  Report Type: 
  Country: None (occurrence: None)
  Receive Date: 20080123
  Receipt Date: 20080118
  Transmission Date: 20080703
  Serious: Yes (Death)
  Sender: FDA-Public Use
  Company Number: JP-ASTRAZENECA-2008AP00115

PATIENT
  Age: 73 Year

DRUGS (5)
  1. MEROPENEM [Suspect]
     Indication: PNEUMONIA
     Route: 042
     Dates: start: 20071008, end: 20071012
  2. MODACIN [Suspect]
     Indication: PNEUMONIA
     Route: 042
     Dates: start: 20070929, end: 20071008
  3. DALACIN-S [Suspect]
     Indication: PNEUMONIA
     Route: 042
     Dates: start: 20070929, end: 20071008
  4. ALBUMIN (HUMAN) [Concomitant]
     Indication: HYPOALBUMINAEMIA
     Route: 042
     Dates: start: 20071002, end: 20071004
  5. BISOLVON [Concomitant]
     Indication: BRONCHITIS
     Route: 042
     Dates: start: 20071009, end: 20071009

REACTIONS (1)
  - PNEUMONITIS [None]
